FAERS Safety Report 4414245-8 (Version None)
Quarter: 2004Q3

REPORT INFORMATION
  Report Type: 
  Country: None (occurrence: None)
  Receive Date: 20040729
  Receipt Date: 20040713
  Transmission Date: 20050211
  Serious: Yes (Hospitalization)
  Sender: FDA-Public Use
  Company Number: DSA_24696_2004

PATIENT
  Age: 73 Year
  Sex: Female

DRUGS (5)
  1. DILTIAZEM HCL [Suspect]
     Indication: ANGINA PECTORIS
     Dosage: 200 MG Q DAY PO
     Route: 048
     Dates: start: 20000301, end: 20030909
  2. DILTIAZEM HCL [Suspect]
     Indication: MYOCARDIAL ISCHAEMIA
     Dosage: 200 MG Q DAY PO
     Route: 048
     Dates: start: 20000301, end: 20030909
  3. BLINDED STUDY DRUG (ZOLEDRONATE OR PLACEBO) [Concomitant]
  4. CALCIUM [Concomitant]
  5. ERGOCALCIFEROL [Concomitant]

REACTIONS (4)
  - CARDIAC MURMUR [None]
  - CIRCULATORY COLLAPSE [None]
  - LOSS OF CONSCIOUSNESS [None]
  - SINUS BRADYCARDIA [None]
